FAERS Safety Report 25752343 (Version 1)
Quarter: 2025Q3

REPORT INFORMATION
  Report Type: Spontaneous
  Country: US (occurrence: None)
  Receive Date: 20250831
  Receipt Date: 20250831
  Transmission Date: 20251021
  Serious: Yes (Hospitalization, Disabling, Other)
  Sender: FDA-CTU
  Company Number: None

PATIENT
  Sex: Female

DRUGS (2)
  1. STEM CELL, EXOSOME, OR GROWTH FACTOR DERIVED UNAPPROVED PRODUCTS [Suspect]
     Active Substance: STEM CELL, EXOSOME, OR GROWTH FACTOR DERIVED UNAPPROVED PRODUCTS
     Indication: Vaginal disorder
     Dates: start: 20210131, end: 20210131
  2. STEM CELL, EXOSOME, OR GROWTH FACTOR DERIVED UNAPPROVED PRODUCTS [Suspect]
     Active Substance: STEM CELL, EXOSOME, OR GROWTH FACTOR DERIVED UNAPPROVED PRODUCTS

REACTIONS (9)
  - Product formulation issue [None]
  - Self-medication [None]
  - Vulvovaginal disorder [None]
  - Cardiovascular disorder [None]
  - Female sexual dysfunction [None]
  - Crying [None]
  - Pain [None]
  - Immobile [None]
  - Sensory loss [None]
